FAERS Safety Report 4735058-3 (Version None)
Quarter: 2005Q3

REPORT INFORMATION
  Report Type: 
  Country: None (occurrence: None)
  Receive Date: 20050804
  Receipt Date: 20050720
  Transmission Date: 20060218
  Serious: Yes (Hospitalization)
  Sender: FDA-Public Use
  Company Number: CERZ-10958

PATIENT
  Age: 19 Year
  Sex: Female
  Weight: 30 kg

DRUGS (1)
  1. CEREZYME [Suspect]
     Indication: GAUCHER'S DISEASE
     Dosage: 1800 UNITS Q2WKS IV
     Route: 042
     Dates: start: 20041117

REACTIONS (6)
  - ASTHENIA [None]
  - DEHYDRATION [None]
  - FAILURE TO THRIVE [None]
  - ORAL INTAKE REDUCED [None]
  - SEPSIS [None]
  - WEIGHT DECREASED [None]
